FAERS Safety Report 6276214-5 (Version None)
Quarter: 2009Q3

REPORT INFORMATION
  Report Type: 
  Country: None (occurrence: None)
  Receive Date: 20090720
  Receipt Date: 20090720
  Transmission Date: 20100115
  Serious: Yes (Hospitalization)
  Sender: FDA-Public Use
  Company Number: None

PATIENT
  Sex: Female
  Weight: 48.6 kg

DRUGS (1)
  1. HERCEPTIN [Suspect]
     Dosage: 190 MG
     Dates: end: 20090707

REACTIONS (5)
  - BLOOD PRESSURE INCREASED [None]
  - INFUSION RELATED REACTION [None]
  - TREMOR [None]
  - UNRESPONSIVE TO STIMULI [None]
  - WHEEZING [None]
